FAERS Safety Report 13815444 (Version 1)
Quarter: 2017Q3

REPORT INFORMATION
  Report Type: Spontaneous
  Country: US (occurrence: US)
  Receive Date: 20170731
  Receipt Date: 20170731
  Transmission Date: 20171127
  Serious: Yes (Disabling)
  Sender: FDA-Public Use
  Company Number: None

PATIENT
  Age: 39 Year
  Sex: Male
  Weight: 60.75 kg

DRUGS (9)
  1. CIPRO [Suspect]
     Active Substance: CIPROFLOXACIN HYDROCHLORIDE
     Indication: COLITIS
     Dosage: ?          QUANTITY:20 TABLET(S);?
     Route: 048
     Dates: start: 20170714, end: 20170719
  2. CIPRO [Suspect]
     Active Substance: CIPROFLOXACIN HYDROCHLORIDE
     Indication: NEPHROLITHIASIS
     Dosage: ?          QUANTITY:20 TABLET(S);?
     Route: 048
     Dates: start: 20170714, end: 20170719
  3. LISINOPRIL. [Concomitant]
     Active Substance: LISINOPRIL
  4. IBPROPHEN [Concomitant]
  5. CULTERLLE PROBIOTICS [Concomitant]
  6. SYNTHROID [Concomitant]
     Active Substance: LEVOTHYROXINE SODIUM
  7. VITAMIN D2 [Concomitant]
     Active Substance: ERGOCALCIFEROL
  8. ATORVISTATIN [Concomitant]
  9. MENS ONE A DAY GUMMIES [Concomitant]

REACTIONS (13)
  - Joint crepitation [None]
  - Pain in extremity [None]
  - White blood cell count increased [None]
  - Musculoskeletal discomfort [None]
  - Muscular weakness [None]
  - Feeding disorder [None]
  - Arthralgia [None]
  - Bone pain [None]
  - Poisoning [None]
  - Dizziness [None]
  - Myalgia [None]
  - Blood urine present [None]
  - Hypoaesthesia [None]

NARRATIVE: CASE EVENT DATE: 20170726
